FAERS Safety Report 5234888-1 (Version None)
Quarter: 2007Q1

REPORT INFORMATION
  Report Type: 
  Country: None (occurrence: None)
  Receive Date: 20070209
  Receipt Date: 20070130
  Transmission Date: 20070707
  Serious: Yes (Other)
  Sender: FDA-Public Use
  Company Number: US-PFIZER INC-2007008573

PATIENT
  Sex: Female

DRUGS (14)
  1. PREDNISONE [Suspect]
     Indication: DYSPNOEA
  2. CHANTIX [Suspect]
     Indication: SMOKING CESSATION THERAPY
     Dates: start: 20061001, end: 20070101
  3. ALL OTHER THERAPEUTIC PRODUCTS [Suspect]
     Indication: DYSPNOEA
  4. LANTUS [Suspect]
     Indication: BLOOD GLUCOSE INCREASED
  5. HUMALOG MIX PEN [Suspect]
     Indication: BLOOD GLUCOSE INCREASED
  6. NORVASC [Concomitant]
  7. AVAPRO [Concomitant]
  8. PROTONIX [Concomitant]
  9. MONTELUKAST SODIUM [Concomitant]
  10. ZYRTEC [Concomitant]
  11. CRESTOR [Concomitant]
  12. AVANDIA [Concomitant]
  13. GLUCOPHAGE [Concomitant]
  14. ADVAIR DISKUS 100/50 [Concomitant]

REACTIONS (10)
  - BLOOD GLUCOSE INCREASED [None]
  - COUGH [None]
  - DECREASED APPETITE [None]
  - DRY MOUTH [None]
  - DYSGEUSIA [None]
  - HEADACHE [None]
  - RESTLESSNESS [None]
  - SLEEP DISORDER [None]
  - WEIGHT DECREASED [None]
  - WEIGHT INCREASED [None]
